FAERS Safety Report 12413131 (Version 1)
Quarter: 2016Q2

REPORT INFORMATION
  Report Type: Report from Study
  Country: BR (occurrence: BR)
  Receive Date: 20160527
  Receipt Date: 20160527
  Transmission Date: 20160815
  Serious: Yes (Death)
  Sender: FDA-Public Use
  Company Number: US-ASTRAZENECA-2016SE57053

PATIENT
  Sex: Female
  Weight: 4.5 kg

DRUGS (2)
  1. UNSPECIFIED [Concomitant]
     Active Substance: UNSPECIFIED INGREDIENT
  2. SYNAGIS [Suspect]
     Active Substance: PALIVIZUMAB
     Indication: BRONCHOPULMONARY DYSPLASIA
     Dosage: 3 DOSES IN 2015 AND 1 DOSE IN APR-2016
     Route: 030
     Dates: start: 2015, end: 201604

REACTIONS (2)
  - Sepsis [Fatal]
  - Pneumonia [Fatal]
